FAERS Safety Report 4427986-3 (Version None)
Quarter: 2004Q3

REPORT INFORMATION
  Report Type: 
  Country: None (occurrence: None)
  Receive Date: 20040813
  Receipt Date: 20040805
  Transmission Date: 20050211
  Serious: Yes (Hospitalization)
  Sender: FDA-Public Use
  Company Number: 2004222914US

PATIENT
  Age: 61 Year
  Sex: Female
  Weight: 90.2 kg

DRUGS (11)
  1. CELEBREX [Suspect]
     Indication: ARTHRITIS
     Dosage: SEE IMAGE
     Route: 048
     Dates: start: 20040429, end: 20040429
  2. CELEBREX [Suspect]
     Indication: ARTHRITIS
     Dosage: SEE IMAGE
     Route: 048
     Dates: start: 20000201
  3. ALCOHOL        (ETHANOL) [Suspect]
  4. SYNTHROID [Concomitant]
  5. DETROL LA [Concomitant]
  6. ZOCOR [Concomitant]
  7. ZOLOFT [Concomitant]
  8. MULTIVITAMINS (PANTHENOL, RETINOL, ERGOCALCIFEROL) [Concomitant]
  9. CALCIUM [Concomitant]
  10. VITAMIN E [Concomitant]
  11. VITAMIN C [Concomitant]

REACTIONS (4)
  - ANAPHYLACTIC REACTION [None]
  - IMPAIRED HEALING [None]
  - RIB FRACTURE [None]
  - TOOTH EXTRACTION [None]
